FAERS Safety Report 8348258-0 (Version None)
Quarter: 2012Q2

REPORT INFORMATION
  Report Type: 
  Country: None (occurrence: None)
  Receive Date: 20120509
  Receipt Date: 20120507
  Transmission Date: 20120825
  Serious: Yes (Other)
  Sender: FDA-Public Use
  Company Number: US-PFIZER INC-2012111702

PATIENT
  Sex: Female
  Weight: 72 kg

DRUGS (2)
  1. ATORVASTATIN CALCIUM [Suspect]
     Indication: BLOOD CHOLESTEROL INCREASED
     Dosage: 20 MG, 1X/DAY
     Dates: start: 20111201, end: 20111201
  2. BENICAR HCT [Concomitant]
     Indication: HYPERTENSION
     Dosage: UNK
     Route: 048

REACTIONS (6)
  - ABDOMINAL DISCOMFORT [None]
  - RESPIRATORY RATE DECREASED [None]
  - HYPERTENSION [None]
  - LETHARGY [None]
  - MALAISE [None]
  - NAUSEA [None]
